FAERS Safety Report 19013876 (Version 1)
Quarter: 2021Q1

REPORT INFORMATION
  Report Type: Report from Study
  Country: JP (occurrence: JP)
  Receive Date: 20210315
  Receipt Date: 20210315
  Transmission Date: 20210420
  Serious: Yes (Hospitalization)
  Sender: FDA-Public Use
  Company Number: JP-CELLTRION INC.-2020JP021957

PATIENT

DRUGS (3)
  1. INFLIXIMAB BS FOR I.V. INFUSION100 MG [NK] [Suspect]
     Active Substance: INFLIXIMAB
     Indication: CROHN^S DISEASE
     Dosage: 350 MILLIGRAM, QD
     Route: 041
     Dates: start: 20161019, end: 20161019
  2. INFLIXIMAB BS FOR I.V. INFUSION100 MG [NK] [Suspect]
     Active Substance: INFLIXIMAB
     Dosage: 350 MILLIGRAM, QD
     Route: 041
     Dates: start: 20161207, end: 20161207
  3. MESALAZINE [Concomitant]
     Active Substance: MESALAMINE
     Indication: CROHN^S DISEASE
     Dosage: UNK
     Dates: start: 20060621

REACTIONS (6)
  - Intestinal obstruction [Unknown]
  - Musculoskeletal stiffness [Recovered/Resolved]
  - Product use issue [Unknown]
  - Off label use [Unknown]
  - Infusion related reaction [Unknown]
  - Underdose [Unknown]

NARRATIVE: CASE EVENT DATE: 20161019
